FAERS Safety Report 21996972 (Version 3)
Quarter: 2023Q2

REPORT INFORMATION
  Report Type: Spontaneous
  Country: US (occurrence: US)
  Receive Date: 20230215
  Receipt Date: 20230425
  Transmission Date: 20230722
  Serious: No
  Sender: FDA-Public Use
  Company Number: US-AMGEN-USASP2023025659

PATIENT
  Age: 58 Year
  Sex: Female
  Weight: 58.957 kg

DRUGS (1)
  1. OTEZLA [Suspect]
     Active Substance: APREMILAST
     Indication: Psoriasis
     Dosage: 30 MILLIGRAM
     Route: 048
     Dates: end: 20230314

REACTIONS (3)
  - Product dose omission issue [Unknown]
  - Abdominal discomfort [Unknown]
  - Nausea [Unknown]
